FAERS Safety Report 14143374 (Version 2)
Quarter: 2017Q4

REPORT INFORMATION
  Report Type: Report from Study
  Country: NO (occurrence: NO)
  Receive Date: 20171030
  Receipt Date: 20171215
  Transmission Date: 20180321
  Serious: Yes (Death)
  Sender: FDA-Public Use
  Company Number: NO-ARIAD PHARMACEUTICALS, INC-2017NO009157

PATIENT
  Age: 55 Year
  Sex: Male

DRUGS (1)
  1. BRIGATINIB [Suspect]
     Active Substance: BRIGATINIB
     Indication: METASTATIC NEOPLASM
     Dosage: UNK
     Route: 048
     Dates: start: 20170508, end: 20170810

REACTIONS (1)
  - Death [Fatal]
